FAERS Safety Report 7629798-6 (Version None)
Quarter: 2011Q3

REPORT INFORMATION
  Report Type: 
  Country: None (occurrence: None)
  Receive Date: 20110722
  Receipt Date: 20110715
  Transmission Date: 20111222
  Serious: Yes (Hospitalization, Disabling, Other)
  Sender: FDA-Public Use
  Company Number: US-PFIZER INC-2011059221

PATIENT
  Sex: Male

DRUGS (13)
  1. OXYCONTIN [Concomitant]
     Indication: PAIN
     Dosage: UNK
     Dates: start: 20010101
  2. ATIVAN [Concomitant]
     Indication: ANXIETY
     Dosage: UNK
     Dates: start: 20050101
  3. METOCLOPRAMIDE [Concomitant]
     Indication: NAUSEA
     Dosage: UNK
     Dates: start: 20070101, end: 20100101
  4. CYMBALTA [Concomitant]
     Indication: NEURALGIA
     Dosage: UNK
     Dates: start: 20050101
  5. CHANTIX [Suspect]
     Indication: SMOKING CESSATION THERAPY
     Dosage: STARTING PACK AND CONTINUING MONTH PACK
     Dates: start: 20081023, end: 20081107
  6. TOPAMAX [Concomitant]
     Indication: MIGRAINE
     Dosage: UNK
     Dates: start: 20060101, end: 20090101
  7. PROAIR HFA [Concomitant]
     Indication: ASTHMA
     Dosage: UNK
     Dates: start: 20060101, end: 20090101
  8. THEO-DUR [Concomitant]
     Indication: ASTHMA
     Dosage: UNK
     Dates: start: 19800101
  9. LIPRAM [Concomitant]
     Indication: PANCREATITIS
     Dosage: UNK
     Dates: start: 20040101, end: 20090101
  10. FIORINAL [Concomitant]
     Indication: MIGRAINE
     Dosage: UNK
     Dates: start: 20060101, end: 20090101
  11. FLEXERIL [Concomitant]
     Indication: MUSCLE RELAXANT THERAPY
     Dosage: UNK
     Dates: start: 20040101
  12. LOMOTIL [Concomitant]
     Indication: DIARRHOEA
     Dosage: UNK
     Dates: start: 20040101
  13. METOCLOPRAMIDE [Concomitant]
     Indication: VOMITING

REACTIONS (4)
  - SUICIDE ATTEMPT [None]
  - DEPRESSION [None]
  - INTENTIONAL OVERDOSE [None]
  - ANXIETY [None]
